FAERS Safety Report 5573245-5 (Version None)
Quarter: 2007Q4

REPORT INFORMATION
  Report Type: 
  Country: None (occurrence: None)
  Receive Date: 20071220
  Receipt Date: 20071127
  Transmission Date: 20080405
  Serious: Yes (Other)
  Sender: FDA-Public Use
  Company Number: 2007US003103

PATIENT
  Age: 1 Year
  Sex: Female
  Weight: 9 kg

DRUGS (6)
  1. AMBISOME [Suspect]
     Indication: FEBRILE NEUTROPENIA
     Dosage: 50 MG, IV NOS
     Route: 042
     Dates: start: 20071009, end: 20071014
  2. CYCLOSPORINE [Concomitant]
  3. TAZOBACTAM SODIUM (TAZOBACTAM SODIUM) [Concomitant]
  4. AMIKACIN SULFATE [Concomitant]
  5. PIPERACILLIN SODIUM [Concomitant]
  6. VANCOMYCIN HYDROCHLORIDE [Concomitant]

REACTIONS (1)
  - IRRITABILITY [None]
